FAERS Safety Report 7279365-1 (Version None)
Quarter: 2011Q1

REPORT INFORMATION
  Report Type: 
  Country: None (occurrence: None)
  Receive Date: 20110208
  Receipt Date: 20110113
  Transmission Date: 20110831
  Serious: No
  Sender: FDA-Public Use
  Company Number: CA-B.I. PHARMACEUTICALS,INC./RIDGEFIELD-2010-BP-06412BP

PATIENT
  Sex: Male

DRUGS (1)
  1. MIRAPEX [Suspect]
     Indication: PARKINSON'S DISEASE
     Dosage: SEE NARRATIVE FOR DETAILS
     Dates: start: 20040226, end: 20070801

REACTIONS (4)
  - SUICIDAL IDEATION [None]
  - HYPERSEXUALITY [None]
  - PATHOLOGICAL GAMBLING [None]
  - OBSESSIVE-COMPULSIVE DISORDER [None]
